FAERS Safety Report 15866913 (Version 1)
Quarter: 2019Q1

REPORT INFORMATION
  Report Type: Spontaneous
  Country: US (occurrence: US)
  Receive Date: 20190124
  Receipt Date: 20190124
  Transmission Date: 20190417
  Serious: Yes (Disabling)
  Sender: FDA-Public Use
  Company Number: None

PATIENT
  Age: 72 Year
  Sex: Female
  Weight: 55.35 kg

DRUGS (2)
  1. RECLAST [Suspect]
     Active Substance: ZOLEDRONIC ACID
     Indication: OSTEOPOROSIS
     Dosage: ?          QUANTITY:1 INJECTION(S);OTHER FREQUENCY:1YEARLY X 3 YEARS;?
     Route: 042
     Dates: start: 20150630, end: 20170629
  2. RECLAST [Suspect]
     Active Substance: ZOLEDRONIC ACID
     Indication: OSTEOPOROSIS PROPHYLAXIS
     Dosage: ?          QUANTITY:1 INJECTION(S);OTHER FREQUENCY:1YEARLY X 3 YEARS;?
     Route: 042
     Dates: start: 20150630, end: 20170629

REACTIONS (13)
  - Limb discomfort [None]
  - Myosclerosis [None]
  - Musculoskeletal disorder [None]
  - Hypokinesia [None]
  - Muscle spasms [None]
  - Loss of personal independence in daily activities [None]
  - Arthralgia [None]
  - Sleep disorder [None]
  - Pain in extremity [None]
  - Gait disturbance [None]
  - Gait inability [None]
  - Walking aid user [None]
  - Muscle mass [None]

NARRATIVE: CASE EVENT DATE: 20170808
